FAERS Safety Report 24114160 (Version 2)
Quarter: 2024Q3

REPORT INFORMATION
  Report Type: Spontaneous
  Country: US (occurrence: US)
  Receive Date: 20240720
  Receipt Date: 20240731
  Transmission Date: 20241017
  Serious: No
  Sender: GRANULES INDIA
  Company Number: US-GRANULES-US-2024GRASPO00281

PATIENT
  Sex: Female

DRUGS (1)
  1. ACETAMINOPHEN [Suspect]
     Active Substance: ACETAMINOPHEN
     Indication: Arthropathy
     Dosage: 2 CAPLETS, EVERY 8 HOURS, AND AFTER ABOUT A MONTH INCREASED TO EVERY 4 HOURS
     Route: 065

REACTIONS (1)
  - Drug ineffective [Unknown]
